FAERS Safety Report 10012108 (Version 1)
Quarter: 2014Q1

REPORT INFORMATION
  Report Type: Spontaneous
  Country: US (occurrence: None)
  Receive Date: 20140313
  Receipt Date: 20140313
  Transmission Date: 20141002
  Serious: Yes (Hospitalization)
  Sender: FDA-Public Use
  Company Number: None

PATIENT
  Age: 66 Year
  Sex: Male
  Weight: 104.7 kg

DRUGS (2)
  1. 5-FLUOROURACIL [Suspect]
  2. OXALIPLATIN [Suspect]

REACTIONS (5)
  - Dizziness [None]
  - Hypotension [None]
  - Infection [None]
  - Pneumonia [None]
  - Dysphagia [None]
